FAERS Safety Report 19267910 (Version 1)
Quarter: 2021Q2

REPORT INFORMATION
  Report Type: Spontaneous
  Country: CN (occurrence: CN)
  Receive Date: 20210517
  Receipt Date: 20210517
  Transmission Date: 20210717
  Serious: Yes (Hospitalization)
  Sender: FDA-Public Use
  Company Number: CN-PFIZER INC-2021498270

PATIENT
  Age: 53 Year
  Sex: Female

DRUGS (2)
  1. SULPERAZON [Suspect]
     Active Substance: CEFOPERAZONE SODIUM\SULBACTAM SODIUM
     Dosage: 3 G, 3X/DAY
     Route: 041
     Dates: start: 202104, end: 202104
  2. TYGACIL [Suspect]
     Active Substance: TIGECYCLINE
     Dosage: 0.1 G, 2X/DAY
     Route: 041
     Dates: start: 202104, end: 202104

REACTIONS (4)
  - Off label use [Unknown]
  - Haemoglobin increased [Unknown]
  - Drug ineffective [Unknown]
  - Transaminases increased [Unknown]

NARRATIVE: CASE EVENT DATE: 202104
